FAERS Safety Report 6693292-X (Version None)
Quarter: 2010Q2

REPORT INFORMATION
  Report Type: 
  Country: None (occurrence: None)
  Receive Date: 20100421
  Receipt Date: 20100421
  Transmission Date: 20101027
  Serious: Yes (Hospitalization)
  Sender: FDA-Public Use
  Company Number: None

PATIENT
  Sex: Female
  Weight: 88.4514 kg

DRUGS (1)
  1. LEXAPRO [Suspect]
     Indication: MYOCLONUS
     Dosage: 10 MG 1X DAILY PO
     Route: 048
     Dates: start: 20091001, end: 20100223

REACTIONS (2)
  - MYOCLONUS [None]
  - RESTLESS LEGS SYNDROME [None]
